FAERS Safety Report 21016634 (Version 1)
Quarter: 2022Q2

REPORT INFORMATION
  Report Type: Spontaneous
  Country: DE (occurrence: DE)
  Receive Date: 20220628
  Receipt Date: 20220628
  Transmission Date: 20220721
  Serious: Yes (Death, Other)
  Sender: FDA-Public Use
  Company Number: DE-DCGMA-22198463

PATIENT
  Age: 83 Year
  Sex: Female

DRUGS (7)
  1. METFORMIN [Suspect]
     Active Substance: METFORMIN HYDROCHLORIDE
     Indication: Dehydration
     Dosage: 2000 MILLIGRAM, QD (DAILY DOSE: 2000 MG MILLGRAM(S) EVERY DAYS 2 SEPARATED DOSES)
     Route: 048
  2. LANTUS [Concomitant]
     Active Substance: INSULIN GLARGINE
     Dosage: UNK
     Route: 065
  3. NOVORAPID [Concomitant]
     Active Substance: INSULIN ASPART
     Dosage: UNK
     Route: 065
  4. MEMANTINE [Concomitant]
     Active Substance: MEMANTINE
     Dosage: UNK
     Route: 065
  5. VITAMIN B12 [Concomitant]
     Active Substance: CYANOCOBALAMIN
     Dosage: UNK
     Route: 065
  6. PANTOZOL [Concomitant]
     Active Substance: PANTOPRAZOLE SODIUM
     Dosage: UNK
     Route: 065
  7. FOLIC ACID [Concomitant]
     Active Substance: FOLIC ACID
     Dosage: UNK
     Route: 065

REACTIONS (2)
  - Lactic acidosis [Fatal]
  - Off label use [Unknown]

NARRATIVE: CASE EVENT DATE: 20220531
